FAERS Safety Report 7396122-6 (Version None)
Quarter: 2011Q2

REPORT INFORMATION
  Report Type: 
  Country: None (occurrence: None)
  Receive Date: 20110406
  Receipt Date: 20110325
  Transmission Date: 20111010
  Serious: Yes (Hospitalization)
  Sender: FDA-Public Use
  Company Number: JP-ELI_LILLY_AND_COMPANY-JP201103008237

PATIENT
  Age: 77 Year
  Sex: Female

DRUGS (2)
  1. FORTEO [Suspect]
     Dosage: UNK
     Route: 058
     Dates: start: 20110201
  2. FORTEO [Suspect]
     Dosage: UNK
     Route: 058
     Dates: start: 20101001, end: 20101201

REACTIONS (2)
  - GASTRIC HAEMORRHAGE [None]
  - FRACTURE [None]
